FAERS Safety Report 6852466-5 (Version None)
Quarter: 2010Q3

REPORT INFORMATION
  Report Type: 
  Country: None (occurrence: None)
  Receive Date: 20100717
  Receipt Date: 20071112
  Transmission Date: 20110219
  Serious: No
  Sender: FDA-Public Use
  Company Number: US-PFIZER INC-2007097383

PATIENT
  Sex: Female
  Weight: 75 kg

DRUGS (7)
  1. CHANTIX [Suspect]
     Indication: SMOKING CESSATION THERAPY
     Dates: start: 20071001
  2. FOSAMAX [Concomitant]
  3. ESTROGENS [Concomitant]
  4. PERIOSTAT [Concomitant]
  5. MULTI-VITAMINS [Concomitant]
  6. VITAMIN C [Concomitant]
  7. CALCIUM [Concomitant]

REACTIONS (6)
  - COGNITIVE DISORDER [None]
  - DISTURBANCE IN ATTENTION [None]
  - FEELING ABNORMAL [None]
  - INSOMNIA [None]
  - SEDATION [None]
  - SPEECH DISORDER [None]
